FAERS Safety Report 7213526-2 (Version None)
Quarter: 2011Q1

REPORT INFORMATION
  Report Type: 
  Country: None (occurrence: None)
  Receive Date: 20110106
  Receipt Date: 20101227
  Transmission Date: 20110831
  Serious: Yes (Hospitalization)
  Sender: FDA-Public Use
  Company Number: NL-MEDIMMUNE-MEDI-0011985

PATIENT
  Sex: Female
  Weight: 10.15 kg

DRUGS (3)
  1. SYNAGIS [Suspect]
     Route: 030
     Dates: start: 20101209
  2. ACETYLSALICYLATE CALCIUM [Concomitant]
     Indication: HEART DISEASE CONGENITAL
  3. SYNAGIS [Suspect]
     Route: 030
     Dates: start: 20101013, end: 20101108

REACTIONS (1)
  - VIRAL INFECTION [None]
